FAERS Safety Report 14419245 (Version 2)
Quarter: 2018Q2

REPORT INFORMATION
  Report Type: Report from Study
  Country: CN (occurrence: CN)
  Receive Date: 20180122
  Receipt Date: 20180416
  Transmission Date: 20180711
  Serious: Yes (Death, Life-Threatening, Other)
  Sender: FDA-Public Use
  Company Number: CN-ASTELLAS-2016US038167

PATIENT
  Age: 50 Year
  Sex: Male

DRUGS (6)
  1. ERLOTINIB [Suspect]
     Active Substance: ERLOTINIB
     Indication: LUNG ADENOCARCINOMA STAGE III
     Dosage: 150 MG, ONCE DAILY
     Route: 048
     Dates: start: 20150930, end: 20160831
  2. APATINIB [Suspect]
     Active Substance: APATINIB
     Indication: LUNG NEOPLASM MALIGNANT
     Dosage: 250MG-500MG, ONCE DAILY
     Route: 048
     Dates: start: 20160317, end: 20160831
  3. GEMCITABINE [Concomitant]
     Active Substance: GEMCITABINE\GEMCITABINE HYDROCHLORIDE
     Indication: PRODUCT USED FOR UNKNOWN INDICATION
     Route: 065
     Dates: start: 20141003
  4. DABIGATRAN ETEXILATE [Concomitant]
     Active Substance: DABIGATRAN ETEXILATE
     Indication: VENOUS THROMBOSIS
     Route: 048
     Dates: start: 20170727, end: 20170825
  5. ERLOTINIB [Suspect]
     Active Substance: ERLOTINIB
     Indication: NON-SMALL CELL LUNG CANCER
  6. CISPLATIN. [Concomitant]
     Active Substance: CISPLATIN
     Indication: PRODUCT USED FOR UNKNOWN INDICATION
     Route: 065
     Dates: start: 20141003

REACTIONS (6)
  - Decreased appetite [Unknown]
  - Venous thrombosis [Unknown]
  - Haemorrhage subcutaneous [Not Recovered/Not Resolved]
  - Hypertension [Recovered/Resolved]
  - Lung infection [Fatal]
  - Pyrexia [Unknown]

NARRATIVE: CASE EVENT DATE: 20160407
